FAERS Safety Report 7036158-8 (Version None)
Quarter: 2010Q4

REPORT INFORMATION
  Report Type: 
  Country: None (occurrence: None)
  Receive Date: 20101008
  Receipt Date: 20100521
  Transmission Date: 20110411
  Serious: No
  Sender: FDA-Public Use
  Company Number: US-BRISTOL-MYERS SQUIBB COMPANY-15077100

PATIENT
  Sex: Male

DRUGS (1)
  1. AVAPRO [Suspect]
     Indication: BLOOD PRESSURE
     Dosage: 1 DF=150 MG 2 TABS/D, SOMETIMES 3 TABS/D AND 4 TABS/DAY OCASSIONALLY

REACTIONS (2)
  - BLOOD PRESSURE INCREASED [None]
  - MEDICATION ERROR [None]
